FAERS Safety Report 15453376 (Version 2)
Quarter: 2021Q4

REPORT INFORMATION
  Report Type: Report from Study
  Country: US (occurrence: US)
  Receive Date: 20181001
  Receipt Date: 20211004
  Transmission Date: 20220303
  Serious: Yes (Other)
  Sender: FDA-Public Use
  Company Number: US-JAZZ-2016-US-021563

PATIENT
  Sex: Female
  Weight: 116.67 kg

DRUGS (31)
  1. XYREM [Suspect]
     Active Substance: SODIUM OXYBATE
     Indication: Narcolepsy
     Dosage: 2.25 G, BID
     Route: 048
     Dates: start: 201306, end: 2013
  2. XYREM [Suspect]
     Active Substance: SODIUM OXYBATE
     Dosage: DOSE ADJUSTMENT
     Route: 048
     Dates: start: 2013, end: 2014
  3. XYREM [Suspect]
     Active Substance: SODIUM OXYBATE
     Dosage: 4.50 G, BID
     Route: 048
     Dates: start: 201403
  4. XYREM [Suspect]
     Active Substance: SODIUM OXYBATE
     Dosage: UNK
     Dates: end: 2018
  5. XYREM [Suspect]
     Active Substance: SODIUM OXYBATE
     Dosage: 4.5 GRAM, BID
  6. AMBIEN [Suspect]
     Active Substance: ZOLPIDEM TARTRATE
     Indication: Product used for unknown indication
  7. ADDERALL [Concomitant]
     Active Substance: AMPHETAMINE ASPARTATE\AMPHETAMINE SULFATE\DEXTROAMPHETAMINE SACCHARATE\DEXTROAMPHETAMINE SULFATE
  8. FEXOFENADINE HCL [Concomitant]
     Active Substance: FEXOFENADINE HYDROCHLORIDE
  9. FLONASE [Concomitant]
     Active Substance: FLUTICASONE PROPIONATE
  10. CEPHALEXIN [Concomitant]
     Active Substance: CEPHALEXIN
  11. CELEBREX [Concomitant]
     Active Substance: CELECOXIB
  12. CYMBALTA [Concomitant]
     Active Substance: DULOXETINE HYDROCHLORIDE
  13. OMEPRAZOLE [Concomitant]
     Active Substance: OMEPRAZOLE
  14. PROAIR HFA [Concomitant]
     Active Substance: ALBUTEROL SULFATE
  15. DIFLUCAN [Concomitant]
     Active Substance: FLUCONAZOLE
  16. FERROUS SULFATE [Concomitant]
     Active Substance: FERROUS SULFATE
  17. FLEXERIL [Concomitant]
     Active Substance: CYCLOBENZAPRINE HYDROCHLORIDE
  18. MOMETASONE FUROATE [Concomitant]
     Active Substance: MOMETASONE FUROATE
  19. VITAMIN D3 [Concomitant]
     Active Substance: CHOLECALCIFEROL
  20. TRAMADOL HCL [Concomitant]
     Active Substance: TRAMADOL HYDROCHLORIDE
  21. ABILIFY [Concomitant]
     Active Substance: ARIPIPRAZOLE
  22. ALBUTEROL SULFATE [Concomitant]
     Active Substance: ALBUTEROL SULFATE
  23. ASMANEX [Concomitant]
     Active Substance: MOMETASONE FUROATE
  24. EFFEXOR XR [Concomitant]
     Active Substance: VENLAFAXINE HYDROCHLORIDE
  25. LYRICA [Concomitant]
     Active Substance: PREGABALIN
  26. MIRAPEX [Concomitant]
     Active Substance: PRAMIPEXOLE DIHYDROCHLORIDE
  27. ZOLPIDEM [Concomitant]
     Active Substance: ZOLPIDEM TARTRATE
  28. TOVIAZ [Concomitant]
     Active Substance: FESOTERODINE FUMARATE
  29. ACETAMINOPHEN [Concomitant]
     Active Substance: ACETAMINOPHEN
  30. CALCIUM\CHOLECALCIFEROL [Concomitant]
     Active Substance: CALCIUM\CHOLECALCIFEROL
  31. FERROUS SULFATE [Concomitant]
     Active Substance: FERROUS SULFATE

REACTIONS (9)
  - Peripheral venous disease [Unknown]
  - Illness [Unknown]
  - Nasopharyngitis [Unknown]
  - Influenza [Unknown]
  - Drug ineffective [Unknown]
  - Vein disorder [Not Recovered/Not Resolved]
  - Unevaluable event [Unknown]
  - Lymphadenopathy [Recovered/Resolved]
  - Fatigue [Unknown]
